FAERS Safety Report 25935150 (Version 1)
Quarter: 2025Q4

REPORT INFORMATION
  Report Type: Spontaneous
  Country: AU (occurrence: AU)
  Receive Date: 20251017
  Receipt Date: 20251017
  Transmission Date: 20260118
  Serious: Yes (Other)
  Sender: SAMSUNG BIOEPIS
  Company Number: AU-SAMSUNG BIOEPIS-SB-2025-34329

PATIENT
  Weight: 70 kg

DRUGS (2)
  1. RENFLEXIS [Suspect]
     Active Substance: INFLIXIMAB-ABDA
     Indication: Colitis ulcerative
  2. RENFLEXIS [Suspect]
     Active Substance: INFLIXIMAB-ABDA

REACTIONS (2)
  - Colitis ulcerative [Not Recovered/Not Resolved]
  - Product use issue [Unknown]
